FAERS Safety Report 14093373 (Version 1)
Quarter: 2017Q4

REPORT INFORMATION
  Report Type: Spontaneous
  Country: US (occurrence: US)
  Receive Date: 20171016
  Receipt Date: 20171016
  Transmission Date: 20180321
  Serious: Yes (Other)
  Sender: FDA-Public Use
  Company Number: US-TEVA-815165ACC

PATIENT
  Age: 23 Year
  Sex: Female
  Weight: 72.64 kg

DRUGS (3)
  1. CYTOTEC [Concomitant]
     Active Substance: MISOPROSTOL
  2. PARAGARD T 380A [Suspect]
     Active Substance: COPPER
     Indication: CONTRACEPTION
     Dates: start: 20170731
  3. IRON [Concomitant]
     Active Substance: IRON
     Indication: IRON DEFICIENCY

REACTIONS (4)
  - Pelvic fluid collection [Unknown]
  - Abdominal pain [Recovered/Resolved]
  - Pelvic pain [Recovered/Resolved]
  - Device dislocation [Not Recovered/Not Resolved]

NARRATIVE: CASE EVENT DATE: 20170912
